FAERS Safety Report 6085974-8 (Version None)
Quarter: 2009Q1

REPORT INFORMATION
  Report Type: 
  Country: None (occurrence: None)
  Receive Date: 20090218
  Receipt Date: 20090218
  Transmission Date: 20090719
  Serious: No
  Sender: FDA-Public Use
  Company Number: None

PATIENT
  Sex: Female
  Weight: 40 kg

DRUGS (2)
  1. CRYPTAZ -NITAZOXANIDE- 500 MG/TABL. ROMARK, TAMPA FL [Suspect]
     Indication: BLASTOCYSTIS INFECTION
     Dosage: 2 TABL. /DAY 10 DAYS PO
     Route: 048
     Dates: start: 20020401, end: 20020410
  2. CRYPTAZ -NITAZOXANIDE- 500 MG/TABL. ROMARK, TAMPA FL [Suspect]
     Indication: BLASTOCYSTIS INFECTION
     Dosage: 2 TABL. /DAY 3 DAYS PO
     Route: 048
     Dates: start: 20030301, end: 20030303

REACTIONS (1)
  - MYOPIA [None]
